FAERS Safety Report 9380245 (Version 2)
Quarter: 2013Q4

REPORT INFORMATION
  Report Type: Spontaneous
  Country: US (occurrence: US)
  Receive Date: 20130702
  Receipt Date: 20131219
  Transmission Date: 20140711
  Serious: Yes (Death, Hospitalization)
  Sender: FDA-Public Use
  Company Number: US-B.I. PHARMACEUTICALS,INC./RIDGEFIELD-2013-BI-18743BP

PATIENT
  Age: 89 Year
  Sex: Female
  Weight: 58.97 kg

DRUGS (9)
  1. PRADAXA [Suspect]
     Indication: ATRIAL FIBRILLATION
     Dosage: 150 MG
     Route: 048
     Dates: start: 2011, end: 20111011
  2. ADVAIR [Concomitant]
  3. ALBUTEROL INHALER [Concomitant]
     Route: 055
  4. AMIODARONE [Concomitant]
     Dosage: 200 MG
     Route: 048
  5. AVAPRO [Concomitant]
     Dosage: 150 MG
     Route: 048
     Dates: start: 2004, end: 2011
  6. METHIMAZOLE [Concomitant]
     Dosage: 5 MG
     Route: 048
  7. SIMVASTATIN [Concomitant]
     Dosage: 40 MG
     Route: 048
  8. BACTRIM [Concomitant]
     Dosage: 800 MG
     Route: 048
  9. TOPROL XL [Concomitant]
     Dosage: 25 MG
     Route: 048

REACTIONS (2)
  - Haemorrhage intracranial [Fatal]
  - Lobar pneumonia [Unknown]
